FAERS Safety Report 4905098-X (Version None)
Quarter: 2006Q1

REPORT INFORMATION
  Report Type: 
  Country: None (occurrence: None)
  Receive Date: 20060208
  Receipt Date: 20051114
  Transmission Date: 20060701
  Serious: Yes (Other)
  Sender: FDA-Public Use
  Company Number: US-GLAXOSMITHKLINE-A0582213A

PATIENT
  Age: 63 Year
  Sex: Female

DRUGS (9)
  1. PAXIL [Suspect]
     Indication: DEPRESSION
     Route: 048
     Dates: end: 20050801
  2. PAROXETINE HCL [Suspect]
     Indication: DEPRESSION
     Dosage: 40MG PER DAY
     Route: 048
     Dates: start: 20050801, end: 20051001
  3. PROZAC [Suspect]
     Indication: DEPRESSION
     Route: 048
     Dates: start: 20051001
  4. TAMOXIFEN CITRATE [Concomitant]
  5. AMBIEN [Concomitant]
  6. DIOVAN [Concomitant]
  7. LEVOTHYROXINE SODIUM [Concomitant]
  8. TIAZAC [Concomitant]
  9. HYDROCODONE BITARTRATE [Concomitant]

REACTIONS (3)
  - CRYING [None]
  - DRUG INEFFECTIVE [None]
  - HALLUCINATION [None]
